FAERS Safety Report 6930815-7 (Version None)
Quarter: 2010Q3

REPORT INFORMATION
  Report Type: 
  Country: None (occurrence: None)
  Receive Date: 20100818
  Receipt Date: 20100811
  Transmission Date: 20110219
  Serious: Yes (Hospitalization, Other)
  Sender: FDA-Public Use
  Company Number: GB-TEVA-244311ISR

PATIENT
  Age: 35 Year
  Sex: Male

DRUGS (11)
  1. DICLOFENAC [Suspect]
  2. LANSOPRAZOLE [Suspect]
  3. RISPERIDONE [Suspect]
     Route: 048
  4. ZOPICLONE [Suspect]
  5. ETHANOL [Suspect]
  6. AMFETAMINE [Suspect]
  7. COCAINE [Suspect]
  8. METHADONE HCL [Suspect]
  9. RISPERIDONE [Suspect]
     Indication: SCHIZOPHRENIA
     Route: 030
     Dates: end: 20100617
  10. TETRABENAZINE [Suspect]
  11. VALDOXAN (AGOMELATINE) [Suspect]

REACTIONS (2)
  - ELECTROCARDIOGRAM ABNORMAL [None]
  - MULTIPLE DRUG OVERDOSE INTENTIONAL [None]
